FAERS Safety Report 15965276 (Version 1)
Quarter: 2019Q1

REPORT INFORMATION
  Report Type: Spontaneous
  Country: GB (occurrence: GB)
  Receive Date: 20190215
  Receipt Date: 20190215
  Transmission Date: 20190418
  Serious: Yes (Disabling, Other)
  Sender: FDA-Public Use
  Company Number: GB-AUROBINDO-AUR-APL-2019-007984

PATIENT

DRUGS (4)
  1. DULOXETINE GASTRO-RESISTANT CAPSULES, HARD [Suspect]
     Active Substance: DULOXETINE
     Indication: DEPRESSION
     Route: 048
  2. DULOXETINE GASTRO-RESISTANT CAPSULES, HARD [Suspect]
     Active Substance: DULOXETINE
     Dosage: 90 MILLIGRAM
     Route: 048
     Dates: start: 20160101
  3. ACICLOVIR [Concomitant]
     Active Substance: ACYCLOVIR
     Indication: PRODUCT USED FOR UNKNOWN INDICATION
     Dosage: UNK
     Route: 065
  4. DULOXETINE GASTRO-RESISTANT CAPSULES, HARD [Suspect]
     Active Substance: DULOXETINE
     Dosage: 30 MILLIGRAM
     Route: 048

REACTIONS (15)
  - Abdominal discomfort [Not Recovered/Not Resolved]
  - Anxiety [Not Recovered/Not Resolved]
  - Crying [Not Recovered/Not Resolved]
  - Suicidal ideation [Not Recovered/Not Resolved]
  - Nightmare [Not Recovered/Not Resolved]
  - Heart rate irregular [Not Recovered/Not Resolved]
  - Depression [Not Recovered/Not Resolved]
  - Negative thoughts [Not Recovered/Not Resolved]
  - Paraesthesia [Unknown]
  - Night sweats [Not Recovered/Not Resolved]
  - Irritability [Not Recovered/Not Resolved]
  - Malaise [Not Recovered/Not Resolved]
  - Dyspnoea [Not Recovered/Not Resolved]
  - Sedation [Not Recovered/Not Resolved]
  - Thinking abnormal [Not Recovered/Not Resolved]

NARRATIVE: CASE EVENT DATE: 20160101
